FAERS Safety Report 6925507-4 (Version None)
Quarter: 2010Q3

REPORT INFORMATION
  Report Type: 
  Country: None (occurrence: None)
  Receive Date: 20100816
  Receipt Date: 20100811
  Transmission Date: 20110219
  Serious: Yes (Death, Other)
  Sender: FDA-Public Use
  Company Number: JP-SANOFI-AVENTIS-2010SA013011

PATIENT
  Sex: Male

DRUGS (30)
  1. OXALIPLATIN [Suspect]
     Indication: RECTAL CANCER RECURRENT
     Route: 041
     Dates: start: 20081029, end: 20081029
  2. OXALIPLATIN [Suspect]
     Route: 041
     Dates: start: 20100113, end: 20100113
  3. AVASTIN [Suspect]
     Indication: RECTAL CANCER
     Route: 041
     Dates: start: 20080507, end: 20080507
  4. AVASTIN [Suspect]
     Route: 041
     Dates: start: 20091216, end: 20091216
  5. FLUOROURACIL [Suspect]
     Indication: RECTAL CANCER RECURRENT
     Route: 040
     Dates: start: 20080507, end: 20080507
  6. FLUOROURACIL [Suspect]
     Route: 040
     Dates: start: 20100114, end: 20100114
  7. CALCIUM LEVOFOLINATE [Suspect]
     Indication: RECTAL CANCER RECURRENT
     Route: 041
     Dates: start: 20080507, end: 20080507
  8. CALCIUM LEVOFOLINATE [Suspect]
     Route: 041
     Dates: start: 20100114, end: 20100114
  9. IRINOTECAN HYDROCHLORIDE [Concomitant]
     Dates: start: 20080507, end: 20081001
  10. ACETYLSALICYLIC ACID/ALUMINIUM GLYCINATE/MAGNESIUM CARBONATE [Concomitant]
  11. GRAN [Concomitant]
  12. RENIVACE [Concomitant]
  13. WARFARIN [Concomitant]
  14. VASOLAN [Concomitant]
  15. DICLOFENAC SODIUM [Concomitant]
  16. MUCOSTA [Concomitant]
  17. HOKUNALIN [Concomitant]
  18. HACHIAZULE [Concomitant]
  19. PASTARON [Concomitant]
  20. KENALOG [Concomitant]
  21. KLARICID [Concomitant]
  22. CALCICOL [Concomitant]
  23. MAGNESIUM SULFATE [Concomitant]
  24. KYTRIL [Concomitant]
  25. DEXAMETHASONE [Concomitant]
  26. HIRUDOID [Concomitant]
  27. HUSCODE [Concomitant]
  28. OXYCONTIN [Concomitant]
  29. THEO-DUR [Concomitant]
  30. NOVAMIN [Concomitant]

REACTIONS (17)
  - CARDIOMEGALY [None]
  - DIFFUSE ALVEOLAR DAMAGE [None]
  - DISEASE PROGRESSION [None]
  - HYDRONEPHROSIS [None]
  - HYPOXIA [None]
  - ILEAL PERFORATION [None]
  - INTERSTITIAL LUNG DISEASE [None]
  - INTESTINAL OBSTRUCTION [None]
  - PERITONITIS [None]
  - PNEUMONIA [None]
  - PULMONARY FIBROSIS [None]
  - PULMONARY HAEMORRHAGE [None]
  - RENAL FAILURE ACUTE [None]
  - RESPIRATORY FAILURE [None]
  - SEPSIS [None]
  - SHOCK [None]
  - VENTRICULAR FIBRILLATION [None]
